FAERS Safety Report 4929427-6 (Version None)
Quarter: 2006Q1

REPORT INFORMATION
  Report Type: 
  Country: None (occurrence: None)
  Receive Date: 20060301
  Receipt Date: 20060127
  Transmission Date: 20060701
  Serious: Yes (Death, Hospitalization, Other)
  Sender: FDA-Public Use
  Company Number: US-NOVOPROD-250405

PATIENT
  Age: 84 Year
  Sex: Female
  Weight: 59 kg

DRUGS (5)
  1. NOVOSEVEN [Suspect]
     Indication: CEREBRAL HAEMORRHAGE
     Dosage: 80 UG/KG, UNK
     Route: 042
     Dates: start: 20060122, end: 20060122
  2. FENTANYL [Concomitant]
     Dosage: 50 UG, QD
     Route: 042
     Dates: start: 20060122, end: 20060122
  3. FOSPHENYTOIN SODIUM [Concomitant]
     Dosage: 1 G, QD
     Route: 042
     Dates: start: 20060122, end: 20060122
  4. PANTOPRAZOLE [Concomitant]
     Dosage: 40 MG, QD
     Route: 042
     Dates: start: 20060122, end: 20060124
  5. MORPHINE SULFATE [Concomitant]
     Dosage: 49.6 MG, QD
     Route: 042
     Dates: start: 20060124, end: 20060124

REACTIONS (4)
  - ELECTROCARDIOGRAM T WAVE INVERSION [None]
  - MENTAL STATUS CHANGES [None]
  - MYOCARDIAL ISCHAEMIA [None]
  - NEUROLOGICAL SYMPTOM [None]
